FAERS Safety Report 16770274 (Version 2)
Quarter: 2019Q3

REPORT INFORMATION
  Report Type: Spontaneous
  Country: US (occurrence: US)
  Receive Date: 20190904
  Receipt Date: 20190911
  Transmission Date: 20191005
  Serious: Yes (Hospitalization, Other)
  Sender: FDA-Public Use
  Company Number: US-LUPIN PHARMACEUTICALS INC.-2019-05667

PATIENT
  Age: 39 Year
  Sex: Male

DRUGS (2)
  1. SUBOXONE [Suspect]
     Active Substance: BUPRENORPHINE HYDROCHLORIDE\NALOXONE HYDROCHLORIDE
     Indication: PRODUCT USED FOR UNKNOWN INDICATION
     Dosage: UNK (1/4 STRIP )
     Route: 065
  2. GABAPENTIN. [Suspect]
     Active Substance: GABAPENTIN
     Indication: PRODUCT USED FOR UNKNOWN INDICATION
     Dosage: 13 DOSAGE FORM, SINGLE
     Route: 065

REACTIONS (8)
  - Vomiting [Unknown]
  - Mental disorder [Unknown]
  - Acute kidney injury [Recovered/Resolved]
  - Drug abuse [Unknown]
  - Overdose [Unknown]
  - Renal tubular necrosis [Recovered/Resolved]
  - Confusional state [Unknown]
  - Rhabdomyolysis [Recovered/Resolved]
